FAERS Safety Report 19819131 (Version 1)
Quarter: 2021Q3

REPORT INFORMATION
  Report Type: Spontaneous
  Country: US (occurrence: US)
  Receive Date: 20210913
  Receipt Date: 20210913
  Transmission Date: 20211014
  Serious: No
  Sender: FDA-Public Use
  Company Number: US-BIOGEN-2017BI00466262

PATIENT
  Age: 50 Year
  Sex: Female

DRUGS (1)
  1. TECFIDERA [Suspect]
     Active Substance: DIMETHYL FUMARATE
     Indication: MULTIPLE SCLEROSIS
     Route: 048
     Dates: start: 20171001, end: 20171021

REACTIONS (7)
  - Pharyngeal swelling [Recovered/Resolved]
  - Drug intolerance [Unknown]
  - Hypersensitivity [Unknown]
  - Blood count abnormal [Unknown]
  - Dyspnoea [Recovered/Resolved]
  - Migraine [Not Recovered/Not Resolved]
  - Fatigue [Unknown]

NARRATIVE: CASE EVENT DATE: 20171001
